FAERS Safety Report 4285636-3 (Version None)
Quarter: 2004Q1

REPORT INFORMATION
  Report Type: 
  Country: None (occurrence: None)
  Receive Date: 20040203
  Receipt Date: 20040128
  Transmission Date: 20041129
  Serious: Yes (Hospitalization)
  Sender: FDA-Public Use
  Company Number: PERC20040004

PATIENT
  Age: 66 Year
  Sex: Male
  Weight: 46 kg

DRUGS (5)
  1. PERCOCET [Suspect]
     Dosage: PO
     Route: 048
  2. LEUCOVORIN CALCIUM [Concomitant]
  3. PTK787/ZK 222584 VS PLACEBO [Concomitant]
  4. OXALIPLATIN [Concomitant]
  5. 5-FUOROURACIL [Concomitant]

REACTIONS (12)
  - ASTHENIA [None]
  - BACK PAIN [None]
  - BLOOD CULTURE POSITIVE [None]
  - CONDITION AGGRAVATED [None]
  - DIARRHOEA [None]
  - DYSPNOEA [None]
  - HYPOTENSION [None]
  - MEDICATION ERROR [None]
  - NEUTROPENIA [None]
  - OVERDOSE [None]
  - SEPSIS [None]
  - VOMITING [None]
